FAERS Safety Report 11181214 (Version 3)
Quarter: 2015Q3

REPORT INFORMATION
  Report Type: Report from Study
  Country: US (occurrence: US)
  Receive Date: 20150611
  Receipt Date: 20150721
  Transmission Date: 20151125
  Serious: Yes (Death, Hospitalization)
  Sender: FDA-Public Use
  Company Number: US-BAYER-2015-295260

PATIENT
  Age: 38 Year
  Sex: Male

DRUGS (8)
  1. PROCHLORPERAZINE. [Concomitant]
     Active Substance: PROCHLORPERAZINE
     Dosage: 10 MG EVERY 6 HOURS AS NEEDED
     Route: 048
  2. ACETAMINOPHEN W/OXYCODONE [Concomitant]
     Active Substance: ACETAMINOPHEN\OXYCODONE HYDROCHLORIDE
     Dosage: 10-325 MG EVERY 4 HOURS AS NEEDED
     Route: 048
  3. REGORAFENIB [Suspect]
     Active Substance: REGORAFENIB
     Indication: LIPOSARCOMA METASTATIC
     Dosage: 160 MG, OM (C1D1, CROSSOVER), FOR 21 DAYS, THEN 7 DAYS OFF (28 DAY CYCLE)
     Route: 048
     Dates: start: 20150414, end: 20150424
  4. REGORAFENIB [Suspect]
     Active Substance: REGORAFENIB
     Indication: LIPOSARCOMA METASTATIC
     Dosage: UNK
     Dates: end: 20150423
  5. TRIMETOPRIM + SULFAMETOXAZOL [Concomitant]
     Active Substance: SULFAMETHOXAZOLE\TRIMETHOPRIM
     Dosage: 160-800 MG; 1 TAB 2 TIMES DAILY
     Route: 048
  6. CLINDAMYCIN [Concomitant]
     Active Substance: CLINDAMYCIN\CLINDAMYCIN PHOSPHATE
     Dosage: 600 MG, TID; 2 CAPS 3 TIMES DAILY
     Route: 048
  7. DRONABINOL. [Concomitant]
     Active Substance: DRONABINOL
     Dosage: 5 MG, BID
     Route: 048
  8. METHADONE [Concomitant]
     Active Substance: METHADONE HYDROCHLORIDE
     Indication: PAIN
     Dosage: 10 MG EVERY 6 HOURS AS NEEDED
     Route: 048

REACTIONS (4)
  - Bacterial sepsis [Recovered/Resolved]
  - Liposarcoma metastatic [Fatal]
  - Dehydration [Not Recovered/Not Resolved]
  - Nausea [Recovered/Resolved]
